FAERS Safety Report 8609288-4 (Version None)
Quarter: 2012Q3

REPORT INFORMATION
  Report Type: 
  Country: None (occurrence: None)
  Receive Date: 20120821
  Receipt Date: 20120814
  Transmission Date: 20120928
  Serious: Yes (Other)
  Sender: FDA-Public Use
  Company Number: PHHY2012ES070635

PATIENT
  Sex: Female

DRUGS (2)
  1. PREDNISONE [Suspect]
     Indication: RENAL TRANSPLANT
  2. CYCLOSPORINE [Suspect]
     Indication: RENAL TRANSPLANT

REACTIONS (2)
  - STILLBIRTH [None]
  - MATERNAL EXPOSURE DURING PREGNANCY [None]
